FAERS Safety Report 7086810-3 (Version None)
Quarter: 2010Q4

REPORT INFORMATION
  Report Type: 
  Country: None (occurrence: None)
  Receive Date: 20101105
  Receipt Date: 20101027
  Transmission Date: 20110411
  Serious: Yes (Hospitalization)
  Sender: FDA-Public Use
  Company Number: US-ABBOTT-10P-163-0681760-00

PATIENT
  Sex: Female
  Weight: 104.42 kg

DRUGS (10)
  1. MERIDIA [Suspect]
     Indication: WEIGHT DECREASED
     Dates: start: 20030101, end: 20030101
  2. MERIDIA [Suspect]
     Dates: start: 20071101, end: 20080201
  3. MERIDIA [Suspect]
     Dates: end: 20100601
  4. MERIDIA [Suspect]
     Indication: WEIGHT DECREASED
     Dates: start: 20100101
  5. PRAVASTATIN [Concomitant]
     Indication: BLOOD CHOLESTEROL INCREASED
  6. AMLODIPINE [Concomitant]
     Indication: HYPERTENSION
  7. IBUPROFEN [Concomitant]
     Indication: INTERVERTEBRAL DISC DEGENERATION
     Dosage: PRN
  8. LORATADINE [Concomitant]
     Indication: HYPERSENSITIVITY
  9. PANTANOL [Concomitant]
     Indication: HYPERSENSITIVITY
  10. NAPROSYN [Concomitant]
     Indication: PRODUCT USED FOR UNKNOWN INDICATION
     Dosage: PRN

REACTIONS (7)
  - CARDIAC FLUTTER [None]
  - CHEST PAIN [None]
  - EXTRASYSTOLES [None]
  - INSOMNIA [None]
  - INTENTIONAL DRUG MISUSE [None]
  - LOSS OF CONSCIOUSNESS [None]
  - PAIN IN EXTREMITY [None]
